FAERS Safety Report 18333740 (Version 1)
Quarter: 2020Q3

REPORT INFORMATION
  Report Type: Spontaneous
  Country: US (occurrence: US)
  Receive Date: 20200930
  Receipt Date: 20200930
  Transmission Date: 20201103
  Serious: Yes (Hospitalization, Other)
  Sender: FDA-Public Use
  Company Number: None

PATIENT
  Age: 73 Year
  Sex: Female

DRUGS (16)
  1. NYSTOP [Concomitant]
     Active Substance: NYSTATIN
  2. ATORVASTATIN [Concomitant]
     Active Substance: ATORVASTATIN
  3. CEPHALEXIN. [Concomitant]
     Active Substance: CEPHALEXIN
  4. HYDROCO/APAP [Concomitant]
     Active Substance: ACETAMINOPHEN\HYDROCODONE
  5. IRBESARTAN. [Concomitant]
     Active Substance: IRBESARTAN
  6. SUCRALFATE. [Concomitant]
     Active Substance: SUCRALFATE
  7. CLINDAMYCIN. [Concomitant]
     Active Substance: CLINDAMYCIN
  8. SPIRONOLACTONE. [Concomitant]
     Active Substance: SPIRONOLACTONE
  9. DOFETILIDE. [Suspect]
     Active Substance: DOFETILIDE
     Indication: PRODUCT USED FOR UNKNOWN INDICATION
     Route: 048
     Dates: start: 20200702, end: 20200821
  10. CLOPIDOGREL [Concomitant]
     Active Substance: CLOPIDOGREL BISULFATE
  11. AMLODIPINE [Concomitant]
     Active Substance: AMLODIPINE BESYLATE
  12. POT CHLORIDE [Concomitant]
     Active Substance: POTASSIUM CHLORIDE
  13. ONDANSETRON [Concomitant]
     Active Substance: ONDANSETRON
  14. PANTOPRAZOLE [Concomitant]
     Active Substance: PANTOPRAZOLE
  15. LOSARTAN POT [Concomitant]
     Active Substance: LOSARTAN POTASSIUM
  16. CARVEDILOL. [Concomitant]
     Active Substance: CARVEDILOL

REACTIONS (2)
  - Product substitution issue [None]
  - Myocardial infarction [None]

NARRATIVE: CASE EVENT DATE: 20200821
